FAERS Safety Report 9846543 (Version 1)
Quarter: 2014Q1

REPORT INFORMATION
  Report Type: Spontaneous
  Country: BR (occurrence: None)
  Receive Date: 20140117
  Receipt Date: 20140117
  Transmission Date: 20141002
  Serious: Yes (Other)
  Sender: FDA-Public Use
  Company Number: DSJ-2014-00528

PATIENT
  Age: 68 Year
  Sex: Female
  Weight: 65 kg

DRUGS (8)
  1. BENICAR HCT [Suspect]
     Indication: HYPERTENSION
     Route: 048
     Dates: start: 201308
  2. ROSUVASTATIN (ROSUVASTATIN) [Concomitant]
  3. FENOFIBRATE (FENOFIBRATE) [Concomitant]
  4. FORMOTEROL FUMARATE/BUDESONIDE (FORMOTEROL FUMARATE, BUDESONIDE) [Concomitant]
  5. BUPROPION HYDROCHLORIDE [Concomitant]
  6. CLONAZEPAM (CLONAZEPAM) [Concomitant]
  7. ACETYLSALICYLIC ACID (ACETYLSALICYLIC ACID) [Concomitant]
  8. ANTI-INFLAMMATORY FOR PAIN KNEE [Concomitant]

REACTIONS (16)
  - Blood pressure increased [None]
  - Fear of disease [None]
  - Influenza [None]
  - Arthralgia [None]
  - Fatigue [None]
  - Tremor [None]
  - Stress [None]
  - Blood cortisol decreased [None]
  - Weight decreased [None]
  - Weight increased [None]
  - Self-medication [None]
  - Drug administration error [None]
  - Crying [None]
  - Sleep disorder [None]
  - Extra dose administered [None]
  - Cataract operation [None]
